FAERS Safety Report 4949657-7 (Version None)
Quarter: 2006Q1

REPORT INFORMATION
  Report Type: 
  Country: None (occurrence: None)
  Receive Date: 20060316
  Receipt Date: 20060301
  Transmission Date: 20060701
  Serious: Yes (Hospitalization)
  Sender: FDA-Public Use
  Company Number: IMP_2117_2006

PATIENT
  Age: 83 Year
  Sex: Male

DRUGS (5)
  1. OMEPRAZOLE [Suspect]
     Dosage: 20 MG QDAY
  2. HYDROCHLOROTHIAZIDE [Suspect]
     Dosage: DF
  3. CARVEDILOL [Concomitant]
  4. LISINOPRIL [Concomitant]
  5. ASPIRIN [Concomitant]

REACTIONS (15)
  - ABDOMINAL PAIN UPPER [None]
  - ABDOMINAL TENDERNESS [None]
  - ANAEMIA [None]
  - BLOOD CREATININE INCREASED [None]
  - BLOOD GLUCOSE INCREASED [None]
  - BLOOD UREA INCREASED [None]
  - GASTROINTESTINAL DISORDER [None]
  - NAUSEA [None]
  - PANCREATIC PSEUDOCYST [None]
  - PANCREATITIS ACUTE [None]
  - PULMONARY CONGESTION [None]
  - RALES [None]
  - RESPIRATORY DISTRESS [None]
  - RESPIRATORY RATE INCREASED [None]
  - VOMITING [None]
